FAERS Safety Report 8018961 (Version 7)
Quarter: 2014Q1

REPORT INFORMATION
  Report Type: Spontaneous
  Country: US (occurrence: US)
  Receive Date: 20110701
  Receipt Date: 20130107
  Transmission Date: 20141002
  Serious: No
  Sender: FDA-Public Use
  Company Number: PHHY2011US56289

PATIENT
  Age: 37 Year
  Sex: Female
  Weight: 84.4 kg

DRUGS (6)
  1. GILENYA (FTY) CAPSULE, 0.5MG [Suspect]
     Indication: RELAPSING-REMITTING MULTIPLE SCLEROSIS
     Route: 048
     Dates: start: 201105
  2. KLONOPIN [Concomitant]
     Indication: TREMOR
     Dosage: 1 MG/DAILY
     Dates: start: 20091109
  3. AMBIEN CR [Concomitant]
     Indication: INSOMNIA
     Dosage: 12.5 MG, UNK
     Dates: start: 20110111
  4. AMBIEN [Concomitant]
     Dosage: UNK UKN, UNK
     Dates: start: 20120226
  5. STEROIDS NOS [Concomitant]
     Dosage: UNK UKN, OT
     Dates: end: 20120224
  6. WELLBUTRIN [Concomitant]
     Indication: DEPRESSION
     Dosage: 1 TAB 9 AM
     Route: 048
     Dates: start: 20110111

REACTIONS (11)
  - Herpes zoster [Recovered/Resolved]
  - Rash pustular [Not Recovered/Not Resolved]
  - Pain [Not Recovered/Not Resolved]
  - Chest pain [Recovered/Resolved]
  - Blood pressure decreased [Recovered/Resolved]
  - Abdominal pain upper [Unknown]
  - Fatigue [Not Recovered/Not Resolved]
  - Stress [Unknown]
  - Dyspnoea [Not Recovered/Not Resolved]
  - Headache [Unknown]
  - Multiple sclerosis relapse [Recovered/Resolved]
